FAERS Safety Report 6260934-2 (Version None)
Quarter: 2009Q3

REPORT INFORMATION
  Report Type: 
  Country: None (occurrence: None)
  Receive Date: 20090707
  Receipt Date: 20090707
  Transmission Date: 20100115
  Serious: Yes (Hospitalization)
  Sender: FDA-Public Use
  Company Number: None

PATIENT
  Age: 45 Year
  Sex: Male
  Weight: 115 kg

DRUGS (4)
  1. FLUOROURACIL [Suspect]
     Dosage: 1500MG/M2 DAILY X5 IV
     Route: 042
     Dates: start: 20090621, end: 20090626
  2. HYDREA [Suspect]
     Dosage: 1000MG PO DAILY
     Route: 048
     Dates: start: 20090621, end: 20090626
  3. CETUXIMAB 250MG/M2 [Suspect]
     Dosage: 625MG/M2
     Dates: start: 20090622
  4. CETUXIMAB 250MG/M2 [Suspect]
     Dosage: 625MG/M2
     Dates: start: 20090629

REACTIONS (3)
  - HYPOPHAGIA [None]
  - MUCOSAL INFLAMMATION [None]
  - PAIN [None]
